FAERS Safety Report 4878491-1 (Version None)
Quarter: 2006Q1

REPORT INFORMATION
  Report Type: 
  Country: None (occurrence: None)
  Receive Date: 20060112
  Receipt Date: 20060105
  Transmission Date: 20060701
  Serious: Yes (Hospitalization, Other)
  Sender: FDA-Public Use
  Company Number: JP-JNJFOC-20040702323

PATIENT
  Sex: Female
  Weight: 47 kg

DRUGS (14)
  1. REMICADE [Suspect]
     Route: 042
  2. REMICADE [Suspect]
     Route: 042
  3. REMICADE [Suspect]
     Route: 042
  4. REMICADE [Suspect]
     Route: 042
  5. REMICADE [Suspect]
     Route: 042
  6. REMICADE [Suspect]
     Indication: CROHN'S DISEASE
     Route: 042
  7. PREDONINE [Concomitant]
     Indication: CROHN'S DISEASE
     Route: 048
  8. PENTASA [Concomitant]
     Indication: CROHN'S DISEASE
     Route: 048
  9. ELENTAL [Concomitant]
  10. ELENTAL [Concomitant]
     Indication: CROHN'S DISEASE
  11. GASTER D [Concomitant]
     Indication: GASTRITIS
     Route: 048
  12. MUCOSTA [Concomitant]
     Indication: GASTRITIS
     Route: 048
  13. METHOTREXATE [Concomitant]
  14. HYDROCORTISONE SODIUM SUCCINATE [Concomitant]

REACTIONS (8)
  - ANAPHYLACTIC SHOCK [None]
  - ARTHRALGIA [None]
  - BACK PAIN [None]
  - INFUSION RELATED REACTION [None]
  - NAUSEA [None]
  - OXYGEN SATURATION DECREASED [None]
  - RESPIRATORY DISTRESS [None]
  - VOMITING [None]
